FAERS Safety Report 5340268-0 (Version None)
Quarter: 2007Q2

REPORT INFORMATION
  Report Type: 
  Country: None (occurrence: None)
  Receive Date: 20070405
  Receipt Date: 20070102
  Transmission Date: 20071010
  Serious: No
  Sender: FDA-Public Use
  Company Number: US200701000136

PATIENT
  Age: 59 Year
  Sex: Female

DRUGS (10)
  1. CYMBALTA [Suspect]
     Indication: NEURALGIA
     Dosage: SEE IMAGE
     Dates: start: 20060929, end: 20061101
  2. CYMBALTA [Suspect]
     Indication: NEURALGIA
     Dosage: SEE IMAGE
     Dates: start: 20061102
  3. GABAPENTIN [Concomitant]
  4. MORPHINE SULFATE [Concomitant]
  5. CLONAZEPAM [Concomitant]
  6. METHYLPHENIDATE HCL [Concomitant]
  7. LEVOTHYROXINE SODIUM [Concomitant]
  8. ALLOPURINOL [Concomitant]
  9. SULINDAC [Concomitant]
  10. PROTONIX [Concomitant]

REACTIONS (11)
  - ANOREXIA [None]
  - BURNING SENSATION [None]
  - GASTROOESOPHAGEAL REFLUX DISEASE [None]
  - GINGIVAL SWELLING [None]
  - INSOMNIA [None]
  - LIP SWELLING [None]
  - PHARYNGEAL OEDEMA [None]
  - RASH [None]
  - SPEECH DISORDER [None]
  - SWELLING FACE [None]
  - SWOLLEN TONGUE [None]
